FAERS Safety Report 21411733 (Version 2)
Quarter: 2023Q1

REPORT INFORMATION
  Report Type: Spontaneous
  Country: US (occurrence: US)
  Receive Date: 20221005
  Receipt Date: 20230111
  Transmission Date: 20230418
  Serious: No
  Sender: FDA-Public Use
  Company Number: US-CHEMOCENTRYX, INC.-2022USCCXI0375

PATIENT

DRUGS (5)
  1. TAVNEOS [Suspect]
     Active Substance: AVACOPAN
     Indication: Product used for unknown indication
     Dosage: 20 MG, 3X/DAY
     Route: 048
     Dates: start: 20220705, end: 2022
  2. TAVNEOS [Suspect]
     Active Substance: AVACOPAN
     Dosage: 20 MG, 3X/DAY WITH FOOD
     Route: 048
     Dates: start: 2022, end: 2022
  3. TAVNEOS [Suspect]
     Active Substance: AVACOPAN
     Dosage: 30 MG, 2X/DAY
     Route: 048
     Dates: start: 2022, end: 2022
  4. TAVNEOS [Suspect]
     Active Substance: AVACOPAN
     Dosage: 20 MG, 3X/DAY WITH FOOD
     Route: 048
     Dates: start: 2022, end: 2022
  5. TAVNEOS [Suspect]
     Active Substance: AVACOPAN
     Dosage: 20 MG, 3X/DAY WITH FOOD
     Route: 048
     Dates: start: 2022, end: 20221212

REACTIONS (6)
  - Product dose omission issue [Unknown]
  - Intentional product use issue [Unknown]
  - Unevaluable event [Not Recovered/Not Resolved]
  - Influenza [Not Recovered/Not Resolved]
  - Diarrhoea [Not Recovered/Not Resolved]
  - Urinary tract infection [Not Recovered/Not Resolved]

NARRATIVE: CASE EVENT DATE: 20220101
